FAERS Safety Report 5277296-X (Version None)
Quarter: 2007Q1

REPORT INFORMATION
  Report Type: 
  Country: None (occurrence: None)
  Receive Date: 20061213
  Receipt Date: 20060713
  Transmission Date: 20070707
  Serious: Yes (Hospitalization)
  Sender: FDA-Public Use
  Company Number: 2006UW14459

PATIENT
  Age: 33 Year
  Sex: Male

DRUGS (3)
  1. SEROQUEL [Suspect]
     Indication: BIPOLAR II DISORDER
     Dosage: 100 MG PO
     Route: 048
  2. LEXAPRO [Concomitant]
  3. LAMICTAL ^BURROUGHS WELLCOME^ [Concomitant]

REACTIONS (1)
  - SYNCOPE [None]
